FAERS Safety Report 4839547-2 (Version None)
Quarter: 2005Q4

REPORT INFORMATION
  Report Type: 
  Country: None (occurrence: None)
  Receive Date: 20051129
  Receipt Date: 20051109
  Transmission Date: 20060501
  Serious: Yes (Congenital Anomaly)
  Sender: FDA-Public Use
  Company Number: NZ-AVENTIS-200514210EU

PATIENT
  Sex: Male

DRUGS (1)
  1. CLEXANE [Suspect]
     Route: 064

REACTIONS (3)
  - DRUG EXPOSURE DURING PREGNANCY [None]
  - LARYNGEAL STENOSIS [None]
  - LARYNGOMALACIA [None]
